FAERS Safety Report 8285322-9 (Version None)
Quarter: 2012Q2

REPORT INFORMATION
  Report Type: 
  Country: None (occurrence: None)
  Receive Date: 20120413
  Receipt Date: 20111109
  Transmission Date: 20120825
  Serious: No
  Sender: FDA-Public Use
  Company Number: US-ASTRAZENECA-2011SE67821

PATIENT
  Age: 72 Year
  Sex: Female
  Weight: 65.8 kg

DRUGS (3)
  1. NEXIUM [Suspect]
     Indication: GASTROOESOPHAGEAL REFLUX DISEASE
     Route: 048
  2. METOPROLOL TARTRATE [Concomitant]
  3. FAZOMAX [Concomitant]
     Indication: HYPOCALCAEMIA

REACTIONS (2)
  - OFF LABEL USE [None]
  - HEARING IMPAIRED [None]
